FAERS Safety Report 14939007 (Version 4)
Quarter: 2018Q2

REPORT INFORMATION
  Report Type: Spontaneous
  Country: JP (occurrence: JP)
  Receive Date: 20180525
  Receipt Date: 20180626
  Transmission Date: 20180711
  Serious: Yes (Other)
  Sender: FDA-Public Use
  Company Number: JP-PFIZER INC-2018213219

PATIENT
  Sex: Male

DRUGS (2)
  1. DIGOXIN. [Concomitant]
     Active Substance: DIGOXIN
     Dosage: UNK
     Route: 065
  2. LIPITOR [Suspect]
     Active Substance: ATORVASTATIN CALCIUM
     Dosage: 5 MG, 1X/DAY
     Route: 048
     Dates: end: 20180515

REACTIONS (9)
  - Blood pressure increased [Unknown]
  - Intentional product misuse [Unknown]
  - Tachycardia [Not Recovered/Not Resolved]
  - Oxygen saturation decreased [Unknown]
  - Atrial fibrillation [Recovering/Resolving]
  - Blood glucose increased [Not Recovered/Not Resolved]
  - Condition aggravated [Recovering/Resolving]
  - Depressed mood [Not Recovered/Not Resolved]
  - Drug dose omission [Unknown]

NARRATIVE: CASE EVENT DATE: 20180515
